FAERS Safety Report 8926789 (Version 2)
Quarter: 2013Q1

REPORT INFORMATION
  Report Type: Spontaneous
  Country: US (occurrence: US)
  Receive Date: 20121127
  Receipt Date: 20130111
  Transmission Date: 20140127
  Serious: No
  Sender: FDA-Public Use
  Company Number: US-ELI_LILLY_AND_COMPANY-US201211004307

PATIENT
  Age: 64 Year
  Sex: Female
  Weight: 63.95 kg

DRUGS (9)
  1. CYMBALTA [Suspect]
     Indication: MUSCULOSKELETAL PAIN
     Dosage: 30 MG, QD
     Route: 048
     Dates: start: 20121107, end: 20121107
  2. TOPROL [Concomitant]
  3. ZESTRIL [Concomitant]
  4. SYNTHROID [Concomitant]
  5. KLONOPIN [Concomitant]
  6. CELEBREX [Concomitant]
  7. ESTRACE [Concomitant]
  8. NEURONTIN [Concomitant]
  9. ULTRAM [Concomitant]

REACTIONS (16)
  - Presyncope [Unknown]
  - Blood bilirubin increased [Recovered/Resolved]
  - Visual impairment [Unknown]
  - Abdominal pain upper [Unknown]
  - Nausea [Unknown]
  - Insomnia [Unknown]
  - Drug withdrawal syndrome [Unknown]
  - Chills [Unknown]
  - Hyperhidrosis [Unknown]
  - Gait disturbance [Unknown]
  - Dizziness [Unknown]
  - Feeling cold [Unknown]
  - Nightmare [Unknown]
  - Tremor [Unknown]
  - Feeling abnormal [Unknown]
  - Vertigo [Not Recovered/Not Resolved]
